FAERS Safety Report 12717529 (Version 1)
Quarter: 2016Q3

REPORT INFORMATION
  Report Type: Spontaneous
  Country: US (occurrence: US)
  Receive Date: 20160906
  Receipt Date: 20160906
  Transmission Date: 20161109
  Serious: No
  Sender: FDA-Public Use
  Company Number: US-AMNEAL PHARMACEUTICALS-2016AMN00354

PATIENT
  Sex: Female
  Weight: 99.77 kg

DRUGS (19)
  1. DILAUDID [Concomitant]
     Active Substance: HYDROMORPHONE HYDROCHLORIDE
     Indication: PAIN
     Dosage: UNK, 6X/DAY
  2. GABAPENTIN. [Suspect]
     Active Substance: GABAPENTIN
     Dosage: 100 MG, 3X/DAY
     Route: 048
     Dates: start: 20160307
  3. LYRICA [Concomitant]
     Active Substance: PREGABALIN
     Dosage: 150 MG, 3X/DAY
  4. FLONASE [Concomitant]
     Active Substance: FLUTICASONE PROPIONATE
     Indication: RHINITIS
  5. LASIX [Concomitant]
     Active Substance: FUROSEMIDE
     Indication: PERIPHERAL SWELLING
  6. MAG-OX [Concomitant]
     Active Substance: MAGNESIUM OXIDE
  7. DITROPAN [Concomitant]
     Active Substance: OXYBUTYNIN CHLORIDE
  8. METAMUCIL [Concomitant]
     Active Substance: PLANTAGO SEED
  9. COUMADIN [Concomitant]
     Active Substance: WARFARIN SODIUM
     Dosage: (10MG ON MON/WED/FRI ADN 7.5MG REST OF THE WEEK)
  10. KENALOG [Concomitant]
     Active Substance: TRIAMCINOLONE ACETONIDE
     Dosage: (APPLY 2-3 TIMES A DAY)
  11. ASCORBIC ACID. [Concomitant]
     Active Substance: ASCORBIC ACID
  12. PREVACID [Concomitant]
     Active Substance: LANSOPRAZOLE
  13. COZAAR [Concomitant]
     Active Substance: LOSARTAN POTASSIUM
     Dosage: 25 MG, 1X/DAY
  14. ZOCAR [Concomitant]
     Dosage: 40 MG, 1X/DAY
  15. AQUAPHOR NATURAL HEALING [Concomitant]
     Indication: DRY SKIN
  16. MULTIVITAMIN WITH MINERALS TABLET [Concomitant]
  17. GABAPENTIN. [Suspect]
     Active Substance: GABAPENTIN
     Indication: PHANTOM PAIN
     Dosage: 300 MG, 3X/DAY
     Dates: end: 20160318
  18. TYLENOL [Concomitant]
     Active Substance: ACETAMINOPHEN
     Indication: PAIN
     Dosage: 500 MG, 4X/DAY
  19. VENALAFAXINE [Concomitant]

REACTIONS (2)
  - Diarrhoea [Recovered/Resolved]
  - Rash [Recovered/Resolved]
